FAERS Safety Report 25839131 (Version 1)
Quarter: 2025Q3

REPORT INFORMATION
  Report Type: Spontaneous
  Country: JP (occurrence: JP)
  Receive Date: 20250924
  Receipt Date: 20250924
  Transmission Date: 20251020
  Serious: Yes (Other)
  Sender: ALEXION PHARMACEUTICALS
  Company Number: JP-AstraZeneca-CH-00953904A

PATIENT
  Age: 70 Year
  Sex: Male

DRUGS (2)
  1. IMJUDO [Suspect]
     Active Substance: TREMELIMUMAB\TREMELIMUMAB-ACTL
     Indication: Hepatocellular carcinoma
     Dates: start: 20250916, end: 20250916
  2. IMFINZI [Suspect]
     Active Substance: DURVALUMAB
     Indication: Hepatocellular carcinoma
     Dates: start: 20250916, end: 20250916

REACTIONS (3)
  - Cytokine release syndrome [Recovered/Resolved]
  - Interleukin level increased [Unknown]
  - Sepsis [Unknown]

NARRATIVE: CASE EVENT DATE: 20250917
